FAERS Safety Report 22285946 (Version 2)
Quarter: 2023Q2

REPORT INFORMATION
  Report Type: Report from Study
  Country: US (occurrence: US)
  Receive Date: 20230505
  Receipt Date: 20230509
  Transmission Date: 20230722
  Serious: No
  Sender: FDA-Public Use
  Company Number: US-SANOFI-01599014

PATIENT
  Age: 70 Year
  Sex: Male

DRUGS (2)
  1. DUPILUMAB [Suspect]
     Active Substance: DUPILUMAB
     Indication: Nasal polyps
     Dosage: 300 MG, 1X
     Route: 058
  2. DUPILUMAB [Suspect]
     Active Substance: DUPILUMAB
     Dosage: 300 MG, QOW
     Route: 058
     Dates: end: 20230428

REACTIONS (1)
  - Arthralgia [Unknown]
